FAERS Safety Report 4397104-9 (Version None)
Quarter: 2004Q3

REPORT INFORMATION
  Report Type: 
  Country: None (occurrence: None)
  Receive Date: 20040713
  Receipt Date: 20040629
  Transmission Date: 20050211
  Serious: No
  Sender: FDA-Public Use
  Company Number: 2004SE03663

PATIENT
  Age: 46 Year
  Sex: Female

DRUGS (3)
  1. CRESTOR [Suspect]
     Indication: HYPERCHOLESTEROLAEMIA
     Dosage: 10 MG DAILY PO
     Route: 048
     Dates: start: 20040202, end: 20040405
  2. ATENOLOLUM TABLET [Concomitant]
  3. DIOVAN CAPSULE [Concomitant]

REACTIONS (3)
  - AUTOIMMUNE HEPATITIS [None]
  - HEPATIC FIBROSIS [None]
  - HEPATITIS TOXIC [None]
